FAERS Safety Report 11345478 (Version 2)
Quarter: 2015Q3

REPORT INFORMATION
  Report Type: Spontaneous
  Country: US (occurrence: US)
  Receive Date: 20150806
  Receipt Date: 20150810
  Transmission Date: 20151125
  Serious: Yes (Other)
  Sender: FDA-Public Use
  Company Number: US-PFIZER INC-2015262687

PATIENT
  Age: 70 Year
  Sex: Female
  Weight: 93 kg

DRUGS (16)
  1. PREMARIN [Suspect]
     Active Substance: ESTROGENS, CONJUGATED
     Indication: VAGINAL DISORDER
     Dosage: UNK
     Dates: start: 2012
  2. SIROLIMUS. [Suspect]
     Active Substance: SIROLIMUS
     Indication: IMMUNOSUPPRESSION
     Dosage: 1 MG, ALTERNATE DAY
     Route: 048
     Dates: start: 2000
  3. LANTUS [Concomitant]
     Active Substance: INSULIN GLARGINE
     Indication: DIABETES MELLITUS
     Dosage: 80 UNITS, 1X/DAY AT NIGHT
     Route: 058
     Dates: start: 1995
  4. HUMALOG [Concomitant]
     Active Substance: INSULIN LISPRO
     Indication: DIABETES MELLITUS
     Dosage: UNK UNK, 3X/DAY (FOR EACH MEAL)
     Dates: start: 1995
  5. PLAVIX [Concomitant]
     Active Substance: CLOPIDOGREL BISULFATE
     Indication: CEREBROVASCULAR ACCIDENT
     Dosage: 75 MG, 1X/DAY
     Route: 048
     Dates: start: 2007
  6. NYSTATIN. [Concomitant]
     Active Substance: NYSTATIN
     Indication: ORAL PAIN
     Dosage: 1 TABLESPOON AS NEEDED
     Route: 048
  7. ATORVASTATIN CALCIUM. [Suspect]
     Active Substance: ATORVASTATIN CALCIUM
     Indication: LIVER TRANSPLANT
  8. FOLIC ACID. [Concomitant]
     Active Substance: FOLIC ACID
     Indication: CEREBROVASCULAR ACCIDENT
     Dosage: 1MG IN MORNING, 1/2 MG AT NIGHT
     Route: 048
  9. ASPIRIN. [Concomitant]
     Active Substance: ASPIRIN
     Indication: ANTICOAGULANT THERAPY
     Dosage: 81 MG, 1X/DAY (AT NIGHT)
     Dates: start: 2000
  10. MAGNESIUM OXIDE. [Concomitant]
     Active Substance: MAGNESIUM OXIDE
     Indication: MUSCLE SPASMS
     Dosage: 440 MG, 2X/DAY, IN THE MORNING AND AT NIGHT
     Dates: start: 1995
  11. NITROGLYCERIN. [Concomitant]
     Active Substance: NITROGLYCERIN
     Indication: MYOCARDIAL INFARCTION
     Dosage: UNK, AS NEEDED
     Dates: start: 2012
  12. PLAVIX [Concomitant]
     Active Substance: CLOPIDOGREL BISULFATE
     Indication: ANTICOAGULANT THERAPY
  13. TRIMETHOPRIM. [Concomitant]
     Active Substance: TRIMETHOPRIM
     Indication: URINARY TRACT INFECTION
     Dosage: 100 MG, 1X/DAY
     Route: 048
     Dates: start: 2007
  14. ATORVASTATIN CALCIUM. [Suspect]
     Active Substance: ATORVASTATIN CALCIUM
     Indication: BLOOD CHOLESTEROL INCREASED
     Dosage: 20 MG, DAILY
     Route: 048
     Dates: start: 2000
  15. KEPPRA [Concomitant]
     Active Substance: LEVETIRACETAM
     Indication: SEIZURE
     Dosage: 1500 MG, 2X/DAY (IN THE MORNING AND AT NIGHT)
     Route: 048
     Dates: start: 2003
  16. LISINOPRIL. [Concomitant]
     Active Substance: LISINOPRIL
     Indication: ANTICOAGULANT THERAPY
     Dosage: 1 DF AT NIGHT
     Route: 048
     Dates: start: 1995

REACTIONS (4)
  - Blood cholesterol increased [Unknown]
  - Blood triglycerides increased [Unknown]
  - Condition aggravated [Not Recovered/Not Resolved]
  - Urinary tract infection [Not Recovered/Not Resolved]

NARRATIVE: CASE EVENT DATE: 2012
